FAERS Safety Report 8233988-1 (Version None)
Quarter: 2012Q1

REPORT INFORMATION
  Report Type: 
  Country: None (occurrence: None)
  Receive Date: 20120323
  Receipt Date: 20120312
  Transmission Date: 20120608
  Serious: Yes (Hospitalization, Other)
  Sender: FDA-Public Use
  Company Number: 2012MA003312

PATIENT
  Sex: Male
  Weight: 114.76 kg

DRUGS (31)
  1. AVELOX [Concomitant]
  2. ZYRTEC [Concomitant]
  3. TYLOX [Concomitant]
  4. WELLBUTRIN [Concomitant]
  5. ASPIRIN [Concomitant]
  6. COUMADIN [Concomitant]
  7. COQ10 [Concomitant]
  8. DIGOXIN [Suspect]
     Dosage: 0.125 MG
     Dates: start: 20050614, end: 20091103
  9. DILTAMZEM [Concomitant]
  10. PRAVASTATIN [Concomitant]
  11. VITAMIN D [Concomitant]
  12. TAMOXIFEN CITRATE [Concomitant]
  13. METOPROLOL SUCCINATE [Concomitant]
  14. ZOLOFT [Concomitant]
  15. NASACORT [Concomitant]
  16. CEFZIL [Concomitant]
  17. FLONASE [Concomitant]
  18. CLARINEX [Concomitant]
  19. GLUCOSAMINE [Concomitant]
  20. CRESTOR [Concomitant]
  21. MULTI-VITAMIN [Concomitant]
  22. FISH OIL [Concomitant]
  23. NEURONTIN [Concomitant]
  24. VICODIN [Concomitant]
  25. PLAVIX [Concomitant]
  26. BYSTOLIC [Concomitant]
  27. RANITIDINE [Concomitant]
  28. CITALOPRAM HYDROBROMIDE [Concomitant]
  29. ASPIRIN [Concomitant]
  30. LEXAPRO [Concomitant]
  31. SELENIUM [Concomitant]

REACTIONS (46)
  - ACUTE SINUSITIS [None]
  - DYSPHONIA [None]
  - ATRIAL FIBRILLATION [None]
  - GAIT DISTURBANCE [None]
  - VERTIGO [None]
  - BLOOD CHOLESTEROL INCREASED [None]
  - HYPERTENSION [None]
  - NASAL TURBINATE HYPERTROPHY [None]
  - LUNG NEOPLASM MALIGNANT [None]
  - ARTHRALGIA [None]
  - ECONOMIC PROBLEM [None]
  - BACK PAIN [None]
  - PAIN IN EXTREMITY [None]
  - RHINITIS ALLERGIC [None]
  - NEURALGIA [None]
  - OBSTRUCTIVE AIRWAYS DISORDER [None]
  - NASAL SEPTUM DEVIATION [None]
  - INTERVERTEBRAL DISC DEGENERATION [None]
  - BRONCHITIS [None]
  - ASTHENIA [None]
  - GRAFT COMPLICATION [None]
  - PERIPHERAL ARTERY ANEURYSM [None]
  - BALANCE DISORDER [None]
  - FATIGUE [None]
  - RESPIRATORY RATE INCREASED [None]
  - PULMONARY MASS [None]
  - ADJUSTMENT DISORDER [None]
  - HYPOAESTHESIA [None]
  - INJURY [None]
  - COUGH [None]
  - DIZZINESS [None]
  - SOMNOLENCE [None]
  - SEROMA [None]
  - MALAISE [None]
  - SPINAL OSTEOARTHRITIS [None]
  - AORTIC ANEURYSM [None]
  - BRADYCARDIA [None]
  - PARAESTHESIA [None]
  - SPINAL COLUMN STENOSIS [None]
  - PALPITATIONS [None]
  - SICK SINUS SYNDROME [None]
  - DIZZINESS POSTURAL [None]
  - TINNITUS [None]
  - IRRITABILITY [None]
  - MUSCULOSKELETAL PAIN [None]
  - INSOMNIA [None]
